FAERS Safety Report 23993820 (Version 1)
Quarter: 2024Q2

REPORT INFORMATION
  Report Type: Spontaneous
  Country: FR (occurrence: FR)
  Receive Date: 20240620
  Receipt Date: 20240620
  Transmission Date: 20240716
  Serious: Yes (Hospitalization)
  Sender: FDA-Public Use
  Company Number: FR-SUN PHARMACEUTICAL INDUSTRIES LTD-2024RR-452323

PATIENT
  Age: 65 Year
  Sex: Male

DRUGS (7)
  1. MORPHINE [Suspect]
     Active Substance: MORPHINE
     Indication: Product used for unknown indication
     Dosage: 60 TO 100MG PER DAY IN 1 DOSE (DOSAGE BEFORE THE FIRST HOSPITAL PROCEDURE)
     Route: 058
     Dates: end: 20231229
  2. DAFALGAN CODEINE [Suspect]
     Active Substance: ACETAMINOPHEN\CODEINE PHOSPHATE
     Indication: Product used for unknown indication
     Dosage: 1 TABLET PER DAY
     Route: 048
     Dates: end: 20231002
  3. METHADONE [Suspect]
     Active Substance: METHADONE HYDROCHLORIDE
     Indication: Product used for unknown indication
     Dosage: A SINGLE DOSE BY THE PATIENT TO REPLACE MORPHINE
     Route: 048
     Dates: end: 2023
  4. TRAMADOL [Suspect]
     Active Substance: TRAMADOL\TRAMADOL HYDROCHLORIDE
     Indication: Product used for unknown indication
     Dosage: 50 OR 100 MG SEVERAL TIMES A WEEK
     Route: 048
     Dates: end: 20231002
  5. OXYCODONE [Suspect]
     Active Substance: OXYCODONE\OXYCODONE HYDROCHLORIDE
     Indication: Product used for unknown indication
     Dosage: TAKEN OCCASIONALLY AND RANDOMLY DEPENDING ON MIGRAINE ATTACKS
     Route: 048
     Dates: end: 2021
  6. RIMEGEPANT [Suspect]
     Active Substance: RIMEGEPANT
     Indication: Product used for unknown indication
     Dosage: UNK
     Route: 048
     Dates: end: 20240308
  7. ALPRAZOLAM [Suspect]
     Active Substance: ALPRAZOLAM
     Indication: Product used for unknown indication
     Dosage: 0.5 MG PER DAY
     Route: 048
     Dates: end: 202308

REACTIONS (7)
  - Drug abuse [Recovered/Resolved]
  - Product prescribing issue [Recovered/Resolved]
  - Self-medication [Recovered/Resolved]
  - Sleep disorder [Recovering/Resolving]
  - Headache [Recovering/Resolving]
  - Drug dependence [Recovered/Resolved]
  - Depression [Recovering/Resolving]

NARRATIVE: CASE EVENT DATE: 20180101
